FAERS Safety Report 24430217 (Version 1)
Quarter: 2024Q4

REPORT INFORMATION
  Report Type: Spontaneous
  Country: US (occurrence: US)
  Receive Date: 20241013
  Receipt Date: 20241013
  Transmission Date: 20250115
  Serious: Yes (Other)
  Sender: JOHNSON AND JOHNSON
  Company Number: US-JNJFOC-20241029314

PATIENT
  Sex: Female
  Weight: 56.9 kg

DRUGS (1)
  1. TALQUETAMAB [Suspect]
     Active Substance: TALQUETAMAB
     Indication: Plasma cell myeloma
     Dosage: DATE OF LAST ADMINISTRATION - 09/08/2024
     Route: 065
     Dates: start: 20240905, end: 20240930

REACTIONS (1)
  - Plasma cell myeloma [Unknown]
